FAERS Safety Report 6187723-1 (Version None)
Quarter: 2009Q2

REPORT INFORMATION
  Report Type: 
  Country: None (occurrence: None)
  Receive Date: 20090513
  Receipt Date: 20090428
  Transmission Date: 20091009
  Serious: Yes (Other)
  Sender: FDA-Public Use
  Company Number: DE-PFIZER INC-2009207837

PATIENT

DRUGS (1)
  1. HYDROXYZINE PAMOATE [Suspect]
     Dosage: UNK
     Dates: start: 20090428, end: 20090428

REACTIONS (2)
  - SOMNOLENCE [None]
  - VOMITING [None]
